FAERS Safety Report 4969235-3 (Version None)
Quarter: 2006Q2

REPORT INFORMATION
  Report Type: 
  Country: None (occurrence: None)
  Receive Date: 20060405
  Receipt Date: 20060324
  Transmission Date: 20061013
  Serious: Yes (Hospitalization, Other)
  Sender: FDA-Public Use
  Company Number: 2006041937

PATIENT
  Age: 61 Year
  Sex: Female

DRUGS (19)
  1. BENADRYL [Suspect]
     Indication: CHEMOTHERAPY
     Dosage: 50 MG (50 MG, 1 IN 1 D), INTRAVENOUS
     Route: 042
     Dates: start: 20050628
  2. GEMCITABINE [Concomitant]
  3. PACLITAXEL [Concomitant]
  4. DECADRON [Concomitant]
  5. ZOFRAN [Concomitant]
  6. ATIVAN [Concomitant]
  7. RANITIDINE [Concomitant]
  8. VICODIN [Concomitant]
  9. AMBIEN [Concomitant]
  10. PROMETHAZINE HYDROCHLORIDE TAB [Concomitant]
  11. MULTIVITAMIN [Concomitant]
  12. CORAL CALCIUM (CALCIUM, MINERALS NOS) [Concomitant]
  13. ZOMETA [Concomitant]
  14. COMPAZINE [Concomitant]
  15. EMLA CREAM (LIDOCAINE, PRILOCAINE) [Concomitant]
  16. SENNA (SENNA) [Concomitant]
  17. OXYCODONE (OXYCODONE) [Concomitant]
  18. GINGER (GINCER) [Concomitant]
  19. ALLEGRA [Concomitant]

REACTIONS (5)
  - AGITATION [None]
  - ANXIETY [None]
  - CHEST PAIN [None]
  - DYSPNOEA [None]
  - MENTAL STATUS CHANGES [None]
